FAERS Safety Report 14227166 (Version 12)
Quarter: 2019Q3

REPORT INFORMATION
  Report Type: Report from Study
  Country: US (occurrence: US)
  Receive Date: 20171127
  Receipt Date: 20190816
  Transmission Date: 20191004
  Serious: Yes (Life-Threatening, Hospitalization, Other)
  Sender: FDA-Public Use
  Company Number: US-TESARO, INC-US-2017TSO03243

PATIENT
  Age: 74 Year
  Sex: Female
  Weight: 67 kg

DRUGS (5)
  1. ZEJULA [Suspect]
     Active Substance: NIRAPARIB
     Dosage: 100 MG, QD
     Route: 048
     Dates: end: 201805
  2. ZEJULA [Suspect]
     Active Substance: NIRAPARIB
     Dosage: 300 MG, QD
     Route: 048
  3. ZEJULA [Suspect]
     Active Substance: NIRAPARIB
     Indication: OVARIAN CANCER
     Dosage: 300 MG, QD
     Route: 048
     Dates: start: 20170907, end: 20171018
  4. ZEJULA [Suspect]
     Active Substance: NIRAPARIB
     Dosage: 100 MG, QD
     Route: 048
     Dates: start: 201801
  5. ZEJULA [Suspect]
     Active Substance: NIRAPARIB
     Dosage: 100 MG, QD
     Route: 048

REACTIONS (44)
  - Vaginal haemorrhage [Not Recovered/Not Resolved]
  - Dyspnoea exertional [Not Recovered/Not Resolved]
  - Fatigue [Not Recovered/Not Resolved]
  - Constipation [Not Recovered/Not Resolved]
  - Sluggishness [Not Recovered/Not Resolved]
  - Malaise [Recovered/Resolved]
  - Frustration tolerance decreased [Unknown]
  - Blood potassium decreased [Not Recovered/Not Resolved]
  - Haematocrit decreased [Not Recovered/Not Resolved]
  - Haematemesis [Not Recovered/Not Resolved]
  - Tongue blistering [Not Recovered/Not Resolved]
  - Oropharyngeal pain [Not Recovered/Not Resolved]
  - Adverse drug reaction [Recovered/Resolved]
  - Blood glucose increased [Recovered/Resolved]
  - Dysphagia [Not Recovered/Not Resolved]
  - Mouth swelling [Recovered/Resolved]
  - Abdominal discomfort [Unknown]
  - Hypermetabolism [Not Recovered/Not Resolved]
  - Nausea [Not Recovered/Not Resolved]
  - Platelet count decreased [Not Recovered/Not Resolved]
  - Pancytopenia [Not Recovered/Not Resolved]
  - Intestinal obstruction [Recovered/Resolved]
  - White blood cell count decreased [Recovered/Resolved]
  - Oral pain [Recovered/Resolved]
  - Mastication disorder [Not Recovered/Not Resolved]
  - Vascular access complication [Unknown]
  - Muscular weakness [Unknown]
  - Nervousness [Unknown]
  - Gait disturbance [Recovered/Resolved]
  - Asthenia [Not Recovered/Not Resolved]
  - Dizziness [Not Recovered/Not Resolved]
  - Haemoglobin decreased [Not Recovered/Not Resolved]
  - Rectal haemorrhage [Recovered/Resolved]
  - Mouth haemorrhage [Not Recovered/Not Resolved]
  - Ageusia [Recovered/Resolved]
  - Speech disorder [Recovered/Resolved]
  - Weight decreased [Not Recovered/Not Resolved]
  - Dyspnoea [Not Recovered/Not Resolved]
  - Abdominal pain [Unknown]
  - Oral mucosal blistering [Not Recovered/Not Resolved]
  - Endotracheal intubation [Recovered/Resolved]
  - Emotional distress [Unknown]
  - Decreased appetite [Not Recovered/Not Resolved]
  - Red blood cell count decreased [Not Recovered/Not Resolved]

NARRATIVE: CASE EVENT DATE: 201710
